FAERS Safety Report 10648083 (Version 1)
Quarter: 2014Q4

REPORT INFORMATION
  Report Type: Spontaneous
  Country: US (occurrence: None)
  Receive Date: 20141211
  Receipt Date: 20141211
  Transmission Date: 20150529
  Serious: No
  Sender: FDA-Public Use
  Company Number: None

PATIENT

DRUGS (1)
  1. NPH INSULIN [Suspect]
     Active Substance: INSULIN BEEF
     Indication: GESTATIONAL DIABETES
     Dosage: 15 UNITS IN THE MORNING AND 15 UNITS IN THE EVENING

REACTIONS (3)
  - Accidental overdose [None]
  - Drug dispensing error [None]
  - Confusional state [None]
